FAERS Safety Report 18367171 (Version 7)
Quarter: 2023Q1

REPORT INFORMATION
  Report Type: Spontaneous
  Country: PT (occurrence: PT)
  Receive Date: 20201009
  Receipt Date: 20230306
  Transmission Date: 20230417
  Serious: Yes (Death, Life-Threatening, Hospitalization, Other)
  Sender: FDA-Public Use
  Company Number: PT-PFIZER INC-2020364162

PATIENT
  Age: 72 Year
  Sex: Male

DRUGS (6)
  1. ATORVASTATIN [Suspect]
     Active Substance: ATORVASTATIN
     Indication: Dyslipidaemia
     Dosage: 40 MILLIGRAM (40 MG)
     Route: 065
  2. ATORVASTATIN [Suspect]
     Active Substance: ATORVASTATIN
     Dosage: UNK
     Route: 065
  3. PITAVASTATIN [Suspect]
     Active Substance: PITAVASTATIN
     Indication: Dyslipidaemia
     Dosage: 4 MILLIGRAM (4 MG)
     Route: 065
  4. PITAVASTATIN [Suspect]
     Active Substance: PITAVASTATIN
     Dosage: UNK
     Route: 065
  5. METHYLPREDNISOLONE [Concomitant]
     Active Substance: METHYLPREDNISOLONE
     Dosage: UNK UNK, DAILY (1 G/KG)
     Route: 065
  6. PREDNISOLONE [Concomitant]
     Active Substance: PREDNISOLONE
     Dosage: 1 MG/KG
     Route: 065

REACTIONS (16)
  - Pneumonia aspiration [Fatal]
  - Pneumonia bacterial [Fatal]
  - Pneumonia [Fatal]
  - Weight decreased [Fatal]
  - Muscular weakness [Fatal]
  - Gait disturbance [Fatal]
  - Myalgia [Fatal]
  - Decreased appetite [Fatal]
  - Asthenia [Fatal]
  - Medication error [Fatal]
  - Immune-mediated myositis [Fatal]
  - Respiratory tract infection [Unknown]
  - Neuromyopathy [Unknown]
  - Condition aggravated [Not Recovered/Not Resolved]
  - Muscle injury [Unknown]
  - Therapeutic response decreased [Unknown]

NARRATIVE: CASE EVENT DATE: 20200210
